FAERS Safety Report 7749482-8 (Version None)
Quarter: 2011Q3

REPORT INFORMATION
  Report Type: 
  Country: None (occurrence: None)
  Receive Date: 20110914
  Receipt Date: 20110905
  Transmission Date: 20111222
  Serious: Yes (Death, Other)
  Sender: FDA-Public Use
  Company Number: BR-GENZYME-THYM-1002744

PATIENT
  Sex: Female
  Weight: 54.5 kg

DRUGS (4)
  1. THYMOGLOBULIN [Suspect]
     Indication: BONE MARROW CONDITIONING REGIMEN
  2. CYCLOPHOSPHAMIDE [Concomitant]
     Indication: BONE MARROW CONDITIONING REGIMEN
     Dosage: 3270 MG, QD
     Route: 065
     Dates: start: 20110214, end: 20110215
  3. THYMOGLOBULIN [Suspect]
     Indication: HODGKIN'S DISEASE
     Dosage: 110 MG, UNK
     Route: 042
     Dates: start: 20110213, end: 20110216
  4. BUSULFAN [Concomitant]
     Indication: BONE MARROW CONDITIONING REGIMEN
     Dosage: 200 MG, QD
     Route: 065
     Dates: start: 20110210, end: 20110213

REACTIONS (6)
  - CYSTITIS HAEMORRHAGIC [None]
  - PYREXIA [None]
  - PNEUMONIA [None]
  - RASH ERYTHEMATOUS [None]
  - RESPIRATORY FAILURE [None]
  - PRURITUS [None]
